FAERS Safety Report 16965005 (Version 3)
Quarter: 2019Q4

REPORT INFORMATION
  Report Type: Spontaneous
  Country: JP (occurrence: JP)
  Receive Date: 20191028
  Receipt Date: 20191203
  Transmission Date: 20200122
  Serious: Yes (Other)
  Sender: FDA-Public Use
  Company Number: JP-AMGEN-JPNNI2019177328

PATIENT

DRUGS (1)
  1. PANITUMUMAB [Suspect]
     Active Substance: PANITUMUMAB
     Indication: COLON CANCER
     Dosage: UNK
     Route: 050

REACTIONS (6)
  - Performance status decreased [Unknown]
  - Skin disorder [Unknown]
  - Diarrhoea [Unknown]
  - Cutaneous symptom [Unknown]
  - Condition aggravated [Unknown]
  - Cancer pain [Unknown]
